FAERS Safety Report 5227574-5 (Version None)
Quarter: 2007Q1

REPORT INFORMATION
  Report Type: 
  Country: None (occurrence: None)
  Receive Date: 20070202
  Receipt Date: 20070125
  Transmission Date: 20070707
  Serious: Yes (Other)
  Sender: FDA-Public Use
  Company Number: CN-JNJFOC-20070106565

PATIENT
  Age: 16 Year
  Sex: Female

DRUGS (1)
  1. TOPAMAX [Suspect]
     Indication: EPILEPSY
     Route: 048

REACTIONS (2)
  - BRADYPHRENIA [None]
  - LOSS OF CONSCIOUSNESS [None]
